FAERS Safety Report 7087185-6 (Version None)
Quarter: 2010Q4

REPORT INFORMATION
  Report Type: 
  Country: None (occurrence: None)
  Receive Date: 20101106
  Receipt Date: 20101102
  Transmission Date: 20110411
  Serious: Yes (Other)
  Sender: FDA-Public Use
  Company Number: US-WYE-H18531710

PATIENT
  Sex: Female
  Weight: 59.02 kg

DRUGS (1)
  1. EFFEXOR [Suspect]
     Indication: ANXIETY
     Dates: start: 20101001, end: 20101001

REACTIONS (5)
  - BLOOD PRESSURE INCREASED [None]
  - CRYING [None]
  - DRUG WITHDRAWAL SYNDROME [None]
  - MENTAL IMPAIRMENT [None]
  - THINKING ABNORMAL [None]
